FAERS Safety Report 14094697 (Version 1)
Quarter: 2017Q4

REPORT INFORMATION
  Report Type: Report from Study
  Country: US (occurrence: US)
  Receive Date: 20171016
  Receipt Date: 20171016
  Transmission Date: 20180321
  Serious: No
  Sender: FDA-Public Use
  Company Number: US-AMGEN-USASP2017033503

PATIENT
  Age: 75 Year
  Sex: Female

DRUGS (12)
  1. CALCIUM [Concomitant]
     Active Substance: CALCIUM
  2. ROSE HIPS [Concomitant]
  3. VITAMIN A [Concomitant]
     Active Substance: VITAMIN A
  4. FISH OIL [Concomitant]
     Active Substance: FISH OIL
  5. MINERALS [Concomitant]
     Active Substance: MINERALS
  6. QUERCETIN [Concomitant]
     Active Substance: QUERCETIN
  7. VITAMIN C [Concomitant]
     Active Substance: ASCORBIC ACID
  8. PROLIA [Suspect]
     Active Substance: DENOSUMAB
     Indication: OSTEOPOROSIS POSTMENOPAUSAL
     Dosage: UNK
     Route: 065
     Dates: start: 20161228
  9. ESTER C [Concomitant]
     Dosage: 1000 MG, UNK
  10. PRAVASTATIN. [Concomitant]
     Active Substance: PRAVASTATIN
     Dosage: 20 MG, QD
  11. LUTEIN [Concomitant]
     Active Substance: LUTEIN
  12. AMLODIPINE [Concomitant]
     Active Substance: AMLODIPINE BESYLATE
     Dosage: 2.5 MG, UNK

REACTIONS (7)
  - Eye discharge [Not Recovered/Not Resolved]
  - Weight increased [Unknown]
  - Eye pruritus [Not Recovered/Not Resolved]
  - Sinus headache [Not Recovered/Not Resolved]
  - Injection site pain [Unknown]
  - Eye irritation [Not Recovered/Not Resolved]
  - Musculoskeletal pain [Recovering/Resolving]

NARRATIVE: CASE EVENT DATE: 201701
